FAERS Safety Report 17611894 (Version 3)
Quarter: 2020Q4

REPORT INFORMATION
  Report Type: Report from Study
  Country: US (occurrence: US)
  Receive Date: 20200401
  Receipt Date: 20201027
  Transmission Date: 20210113
  Serious: Yes (Other)
  Sender: FDA-Public Use
  Company Number: NVSC2020US086084

PATIENT
  Sex: Female

DRUGS (2)
  1. XIIDRA [Suspect]
     Active Substance: LIFITEGRAST
     Dosage: UNK
     Route: 065
     Dates: start: 20180227
  2. XIIDRA [Suspect]
     Active Substance: LIFITEGRAST
     Indication: DRY EYE
     Dosage: UNK UNK, BID
     Route: 047

REACTIONS (4)
  - Hot flush [Unknown]
  - Eye irritation [Unknown]
  - Eye pain [Unknown]
  - COVID-19 [Unknown]

NARRATIVE: CASE EVENT DATE: 2018
